FAERS Safety Report 6572189-X (Version None)
Quarter: 2010Q1

REPORT INFORMATION
  Report Type: 
  Country: None (occurrence: None)
  Receive Date: 20100205
  Receipt Date: 20100202
  Transmission Date: 20100710
  Serious: Yes (Other)
  Sender: FDA-Public Use
  Company Number: Z0002833A

PATIENT
  Sex: Female
  Weight: 53 kg

DRUGS (8)
  1. ZANAMIVIR [Suspect]
     Indication: INFLUENZA
     Dosage: 600MG TWICE PER DAY
     Route: 042
     Dates: start: 20091230, end: 20100104
  2. OXYGEN [Concomitant]
  3. FUROSEMIDE [Concomitant]
     Indication: OEDEMA
     Dosage: 20MG THREE TIMES PER DAY
     Route: 042
     Dates: start: 20100102
  4. ESOMEPRAZOLE [Concomitant]
     Indication: GASTROOESOPHAGEAL REFLUX DISEASE
     Dosage: 40MG PER DAY
     Dates: start: 20091227
  5. TERBUTALINE SULFATE [Concomitant]
     Indication: BRONCHOSPASM
     Dosage: 5MG THREE TIMES PER DAY
     Route: 055
     Dates: start: 20091227
  6. LORAZEPAM [Concomitant]
     Indication: SEDATION
     Dosage: .5MG THREE TIMES PER DAY
     Dates: start: 20100102
  7. INSULINE [Concomitant]
     Indication: HYPERGLYCAEMIA
     Dosage: 10IU TWICE PER DAY
     Route: 058
     Dates: start: 20091230
  8. METOCLOPRAMIDE [Concomitant]
     Indication: NAUSEA
     Dosage: 10MG THREE TIMES PER DAY
     Route: 042
     Dates: start: 20091231, end: 20100105

REACTIONS (2)
  - CYTOLYTIC HEPATITIS [None]
  - PNEUMOTHORAX [None]
